FAERS Safety Report 9344107 (Version 3)
Quarter: 2014Q2

REPORT INFORMATION
  Report Type: Spontaneous
  Country: IE (occurrence: IE)
  Receive Date: 20130612
  Receipt Date: 20140513
  Transmission Date: 20141212
  Serious: Yes (Other)
  Sender: FDA-Public Use
  Company Number: PHFR2013IE003266

PATIENT
  Age: 40 Year
  Sex: Male

DRUGS (7)
  1. CLOZARIL [Suspect]
     Indication: SCHIZOPHRENIA
     Dosage: 400 MG
     Route: 048
     Dates: start: 20130524
  2. CLOZARIL [Suspect]
     Dosage: 550 MG
     Route: 048
  3. TAZOCIN [Concomitant]
     Dosage: 4.5 MG, TID
     Route: 042
     Dates: start: 20130609
  4. CLONAZEPAM [Concomitant]
     Indication: ANXIETY
     Dosage: 0.5 UKN, UNK
     Route: 048
     Dates: start: 20130519
  5. LITHIUM CARBONATE [Concomitant]
     Indication: AFFECTIVE DISORDER
     Dosage: 600 MG, UNK
     Route: 048
     Dates: start: 20130519
  6. APROVEL [Concomitant]
     Indication: HYPERTENSION
     Dosage: 150 MG, UNK
     Route: 048
     Dates: start: 20130521
  7. OMEPRAZOLE [Concomitant]
     Indication: GASTROOESOPHAGEAL REFLUX DISEASE
     Dosage: UNK UKN, UNK
     Route: 048
     Dates: start: 20130521

REACTIONS (10)
  - Infection [Unknown]
  - Swelling [Recovering/Resolving]
  - Deep vein thrombosis [Recovered/Resolved]
  - Erythema [Unknown]
  - Body temperature increased [Recovering/Resolving]
  - C-reactive protein increased [Recovering/Resolving]
  - White blood cell count increased [Not Recovered/Not Resolved]
  - Neutrophil count increased [Not Recovered/Not Resolved]
  - Nausea [Unknown]
  - Vomiting [Unknown]
